FAERS Safety Report 5011974-2 (Version None)
Quarter: 2006Q2

REPORT INFORMATION
  Report Type: 
  Country: None (occurrence: None)
  Receive Date: 20060524
  Receipt Date: 20060510
  Transmission Date: 20061013
  Serious: Yes (Other)
  Sender: FDA-Public Use
  Company Number: 2006-BP-05360RO

PATIENT
  Age: 50 Year
  Sex: Male

DRUGS (1)
  1. MEFLOQUINE [Suspect]
     Indication: MALARIA PROPHYLAXIS
     Dosage: 1000 MG DAY 1, 500 MG DAY 2, PO
     Route: 048

REACTIONS (13)
  - ABASIA [None]
  - ACTIVITIES OF DAILY LIVING IMPAIRED [None]
  - AREFLEXIA [None]
  - ARTHROPATHY [None]
  - ASTHENIA [None]
  - BURNING SENSATION [None]
  - DYSSTASIA [None]
  - HYPOAESTHESIA [None]
  - HYPOTONIA [None]
  - MUSCULAR WEAKNESS [None]
  - PARAESTHESIA [None]
  - POLYNEUROPATHY [None]
  - RASH ERYTHEMATOUS [None]
